FAERS Safety Report 12703376 (Version 1)
Quarter: 2016Q3

REPORT INFORMATION
  Report Type: Spontaneous
  Country: FR (occurrence: FR)
  Receive Date: 20160831
  Receipt Date: 20160831
  Transmission Date: 20161109
  Serious: Yes (Hospitalization)
  Sender: FDA-Public Use
  Company Number: FR-SA-2016SA157287

PATIENT
  Age: 74 Year
  Sex: Male

DRUGS (13)
  1. MECIR [Concomitant]
     Active Substance: TAMSULOSIN HYDROCHLORIDE
  2. LERCANIDIPINE [Concomitant]
     Active Substance: LERCANIDIPINE
     Dosage: 1 IN THE EVENING
  3. COAPROVEL [Concomitant]
     Active Substance: HYDROCHLOROTHIAZIDE\IRBESARTAN
     Dosage: STRENGTH:300 MG/12.5 MG
  4. MECIREL [Concomitant]
  5. SOTALOL. [Concomitant]
     Active Substance: SOTALOL
  6. PRAVASTATIN. [Concomitant]
     Active Substance: PRAVASTATIN
     Dosage: 1 IN THE EVENING
  7. LERCAN [Concomitant]
     Active Substance: LERCANIDIPINE
     Dosage: 20 MG
  8. AMAREL [Suspect]
     Active Substance: GLIMEPIRIDE
     Indication: TYPE 2 DIABETES MELLITUS
     Route: 048
     Dates: end: 20160418
  9. PREVISCAN [Concomitant]
     Active Substance: FLUINDIONE
     Dosage: 20 MG: 1 IN THE EVENING
  10. SOTALEX [Concomitant]
     Active Substance: SOTALOL
     Dosage: 80 1 IN THE MORNING AND EVENING
  11. UVEDOSE [Concomitant]
     Active Substance: CHOLECALCIFEROL
     Dosage: 100 000 U 1 AMPOULE PER MONTH
  12. TAMSULOSIN [Concomitant]
     Active Substance: TAMSULOSIN
     Dosage: 0.4
  13. JANUVIA [Concomitant]
     Active Substance: SITAGLIPTIN PHOSPHATE
     Dosage: 50

REACTIONS (3)
  - Renal failure [Not Recovered/Not Resolved]
  - Hypoglycaemia [Recovered/Resolved]
  - International normalised ratio increased [Recovered/Resolved]

NARRATIVE: CASE EVENT DATE: 20160417
